FAERS Safety Report 6313878-1 (Version None)
Quarter: 2009Q3

REPORT INFORMATION
  Report Type: 
  Country: None (occurrence: None)
  Receive Date: 20090814
  Receipt Date: 20090807
  Transmission Date: 20100115
  Serious: Yes (Other)
  Sender: FDA-Public Use
  Company Number: 09TR003034

PATIENT
  Age: 28 Year
  Sex: Female
  Weight: 62 kg

DRUGS (2)
  1. MOMETASONE FUROATE [Suspect]
     Indication: ERYTHRODERMIC PSORIASIS
     Dosage: 50 G, WEEKLY, TOPICAL
     Route: 061
  2. ACITRETIN [Suspect]
     Indication: ERYTHRODERMIC PSORIASIS
     Dosage: 50 MG, QD, ORAL; 25 MG, QD, ORAL
     Route: 048

REACTIONS (12)
  - ABDOMINAL PAIN [None]
  - ADRENAL INSUFFICIENCY [None]
  - ASTHENIA [None]
  - CUSHING'S SYNDROME [None]
  - DECREASED APPETITE [None]
  - FATIGUE [None]
  - HYPOTENSION [None]
  - IATROGENIC INJURY [None]
  - LEUKOCYTOSIS [None]
  - NAUSEA [None]
  - PYREXIA [None]
  - URINARY TRACT INFECTION [None]
